FAERS Safety Report 13242329 (Version 1)
Quarter: 2017Q1

REPORT INFORMATION
  Report Type: Spontaneous
  Country: US (occurrence: US)
  Receive Date: 20170216
  Receipt Date: 20170216
  Transmission Date: 20170428
  Serious: No
  Sender: FDA-Public Use
  Company Number: None

PATIENT
  Age: 54 Year
  Sex: Female
  Weight: 70.2 kg

DRUGS (4)
  1. MOMETASONE FUROATE MONOHYDRATE. [Suspect]
     Active Substance: MOMETASONE FUROATE MONOHYDRATE
     Indication: SINUS CONGESTION
     Dosage: ?          OTHER STRENGTH:MCG;QUANTITY:2 SPRAY(S);OTHER ROUTE:NASAL SPRAY?
     Route: 045
     Dates: start: 20170214, end: 20170216
  2. LEXEPRO [Concomitant]
  3. MOMETASONE FUROATE MONOHYDRATE. [Suspect]
     Active Substance: MOMETASONE FUROATE MONOHYDRATE
     Indication: UPPER RESPIRATORY TRACT INFECTION
     Dosage: ?          OTHER STRENGTH:MCG;QUANTITY:2 SPRAY(S);OTHER ROUTE:NASAL SPRAY?
     Route: 045
     Dates: start: 20170214, end: 20170216
  4. ALBUTERAL HFA [Concomitant]

REACTIONS (2)
  - Pruritus [None]
  - Flushing [None]

NARRATIVE: CASE EVENT DATE: 20170216
